FAERS Safety Report 10160195 (Version 2)
Quarter: 2014Q2

REPORT INFORMATION
  Report Type: Report from Study
  Country: RU (occurrence: RU)
  Receive Date: 20140508
  Receipt Date: 20140515
  Transmission Date: 20141212
  Serious: Yes (Other)
  Sender: FDA-Public Use
  Company Number: RU-SA-2014SA053066

PATIENT
  Age: 63 Year
  Sex: Female

DRUGS (6)
  1. PLAVIX [Suspect]
     Indication: THROMBOSIS PROPHYLAXIS
     Route: 048
     Dates: start: 20140408, end: 20140408
  2. PLAVIX [Suspect]
     Indication: THROMBOSIS PROPHYLAXIS
     Route: 048
     Dates: start: 20140409
  3. OMEPRAZOLE [Concomitant]
     Indication: PROPHYLAXIS AGAINST GASTROINTESTINAL ULCER
     Route: 048
  4. ALMAGEL [Concomitant]
     Indication: PROPHYLAXIS AGAINST GASTROINTESTINAL ULCER
     Route: 048
  5. FURAGIN [Concomitant]
     Indication: BLADDER DISORDER
     Route: 048
  6. BIFIDOBACTERIUM LONGUM [Concomitant]
     Route: 048

REACTIONS (2)
  - Blood urine present [Recovered/Resolved]
  - Burning sensation [Recovered/Resolved]
